FAERS Safety Report 9503881 (Version 1)
Quarter: 2013Q3

REPORT INFORMATION
  Report Type: Spontaneous
  Country: US (occurrence: None)
  Receive Date: 20130905
  Receipt Date: 20130905
  Transmission Date: 20140515
  Serious: Yes (Disabling)
  Sender: FDA-Public Use
  Company Number: None

PATIENT
  Age: 30 Year
  Sex: Female
  Weight: 83.46 kg

DRUGS (1)
  1. MIRENA IUD [Suspect]

REACTIONS (10)
  - Anxiety [None]
  - Depression [None]
  - Asthenia [None]
  - Irritability [None]
  - Paranoia [None]
  - Mood swings [None]
  - Alopecia [None]
  - Acne [None]
  - Weight increased [None]
  - Fibrocystic breast disease [None]
